FAERS Safety Report 13252174 (Version 2)
Quarter: 2017Q1

REPORT INFORMATION
  Report Type: Spontaneous
  Country: JP (occurrence: JP)
  Receive Date: 20170220
  Receipt Date: 20170324
  Transmission Date: 20170428
  Serious: Yes (Life-Threatening, Hospitalization)
  Sender: FDA-Public Use
  Company Number: JP-OTSUKA-2017_001961AA

PATIENT
  Age: 49 Year
  Sex: Male

DRUGS (5)
  1. SAMSCA [Suspect]
     Active Substance: TOLVAPTAN
     Indication: HEPATIC CIRRHOSIS
     Dosage: 7.5 MG, QD
     Route: 048
     Dates: start: 20150411, end: 20161025
  2. PARIET [Concomitant]
     Active Substance: RABEPRAZOLE SODIUM
     Indication: HAEMORRHAGE PROPHYLAXIS
  3. ALDACTONE-A [Concomitant]
     Active Substance: SPIRONOLACTONE
     Indication: PRODUCT USED FOR UNKNOWN INDICATION
     Dosage: 50 MG, QD
     Route: 048
     Dates: start: 20140525
  4. LASIX [Concomitant]
     Active Substance: FUROSEMIDE
     Indication: PRODUCT USED FOR UNKNOWN INDICATION
     Dosage: 10 MG, QD
     Route: 048
     Dates: start: 20150310
  5. PARIET [Concomitant]
     Active Substance: RABEPRAZOLE SODIUM
     Indication: ABDOMINAL SYMPTOM
     Dosage: 10 MG, QD
     Route: 048
     Dates: start: 20120329

REACTIONS (4)
  - Abdominal pain [Unknown]
  - Diarrhoea [Unknown]
  - Cough [Unknown]
  - Hepatic function abnormal [Recovered/Resolved]

NARRATIVE: CASE EVENT DATE: 20160802
